FAERS Safety Report 13378216 (Version 1)
Quarter: 2017Q1

REPORT INFORMATION
  Report Type: Report from Study
  Country: CA (occurrence: CA)
  Receive Date: 20170328
  Receipt Date: 20170328
  Transmission Date: 20170429
  Serious: Yes (Hospitalization)
  Sender: FDA-Public Use
  Company Number: CA-AMGEN-CANSL2017044179

PATIENT
  Sex: Male

DRUGS (7)
  1. FOLIC ACID. [Concomitant]
     Active Substance: FOLIC ACID
     Dosage: 5 MG, UNK
     Route: 048
  2. LORAZEPAM. [Concomitant]
     Active Substance: LORAZEPAM
     Dosage: 1 MG, UNK
  3. HYDROMORPHONE [Concomitant]
     Active Substance: HYDROMORPHONE
     Dosage: 2 MG, AS NECESSARY
  4. PREDNISONE. [Concomitant]
     Active Substance: PREDNISONE
     Dosage: 7.5 MG, QD
  5. PANTOLOC [Concomitant]
     Active Substance: PANTOPRAZOLE SODIUM
     Dosage: 40 MG, QD
  6. ENBREL [Suspect]
     Active Substance: ETANERCEPT
     Indication: RHEUMATOID ARTHRITIS
     Dosage: 50 MG, UNK
     Route: 065
     Dates: start: 20160205
  7. MTX [Concomitant]
     Active Substance: METHOTREXATE SODIUM
     Dosage: 20 MG, QD
     Route: 048

REACTIONS (4)
  - Diarrhoea [Unknown]
  - Nausea [Unknown]
  - Drug intolerance [Unknown]
  - Fatigue [Unknown]
